FAERS Safety Report 6979598-5 (Version None)
Quarter: 2010Q3

REPORT INFORMATION
  Report Type: 
  Country: None (occurrence: None)
  Receive Date: 20100913
  Receipt Date: 20100907
  Transmission Date: 20110219
  Serious: Yes (Death)
  Sender: FDA-Public Use
  Company Number: US-GILEAD-2010-0031705

PATIENT
  Sex: Female
  Weight: 66.738 kg

DRUGS (11)
  1. LETAIRIS [Suspect]
     Indication: PULMONARY ARTERIAL HYPERTENSION
     Route: 048
     Dates: start: 20090219
  2. ASPIRIN [Concomitant]
  3. CORDARONE [Concomitant]
  4. ZOCOR [Concomitant]
  5. MIDODRINE HYDROCHLORIDE [Concomitant]
  6. OXYCODONE HCL AND ACETAMINOPHEN [Concomitant]
  7. PREDNISONE [Concomitant]
  8. PROTONIX [Concomitant]
  9. TRAZODONE HCL [Concomitant]
  10. NEURONTIN [Concomitant]
  11. STRESS TABLET [Concomitant]

REACTIONS (1)
  - DEATH [None]
